FAERS Safety Report 13596405 (Version 2)
Quarter: 2017Q3

REPORT INFORMATION
  Report Type: Spontaneous
  Country: IE (occurrence: IE)
  Receive Date: 20170531
  Receipt Date: 20170714
  Transmission Date: 20171127
  Serious: Yes (Other)
  Sender: FDA-Public Use
  Company Number: IE-009507513-1705IRL012438

PATIENT
  Age: 31 Year
  Sex: Female

DRUGS (2)
  1. IMPLANON [Suspect]
     Active Substance: ETONOGESTREL
     Dosage: 1 DF, UNK
     Route: 059
  2. IMPLANON [Suspect]
     Active Substance: ETONOGESTREL
     Dosage: 1 DF, UNK, LEFT ARM
     Dates: start: 20170428

REACTIONS (1)
  - Migration of implanted drug [Not Recovered/Not Resolved]
